FAERS Safety Report 4724925-2 (Version None)
Quarter: 2005Q3

REPORT INFORMATION
  Report Type: 
  Country: None (occurrence: None)
  Receive Date: 20050720
  Receipt Date: 20050720
  Transmission Date: 20060218
  Serious: Yes (Hospitalization)
  Sender: FDA-Public Use
  Company Number: None

PATIENT
  Sex: Male

DRUGS (11)
  1. TERAZOSIN     1 MG [Suspect]
     Indication: BENIGN PROSTATIC HYPERPLASIA
     Dosage: 1 MG   HS   ORAL
     Route: 048
  2. ALLOPURINOL [Concomitant]
  3. DIGOXIN [Concomitant]
  4. DONEPEZIL HCL [Concomitant]
  5. FUROSEMIDE [Concomitant]
  6. LISINOPRIL [Concomitant]
  7. METOPROLOL [Concomitant]
  8. MIRTAZAPINE [Concomitant]
  9. OXYBUTYNIN [Concomitant]
  10. QUETIAPINE [Concomitant]
  11. WARFARIN [Concomitant]

REACTIONS (1)
  - DIZZINESS [None]
